FAERS Safety Report 14814538 (Version 1)
Quarter: 2018Q2

REPORT INFORMATION
  Report Type: Spontaneous
  Country: DE (occurrence: DE)
  Receive Date: 20180426
  Receipt Date: 20180426
  Transmission Date: 20180711
  Serious: Yes (Hospitalization)
  Sender: FDA-Public Use
  Company Number: DE-TORRENT-00007167

PATIENT
  Age: 75 Year
  Sex: Male
  Weight: 63 kg

DRUGS (15)
  1. TILIDIN COMP [Suspect]
     Active Substance: NALOXONE HYDROCHLORIDE\TILIDINE HYDROCHLORIDE
     Indication: POST HERPETIC NEURALGIA
     Dosage: DAILY DOSE: 1 DF DOSAGE FORM EVERY DAY
     Route: 048
     Dates: start: 20170724, end: 20170811
  2. FOLSAEURE [Concomitant]
     Active Substance: FOLIC ACID
     Indication: PRODUCT USED FOR UNKNOWN INDICATION
     Dosage: DAILY DOSE: 1 DF DOSAGE FORM EVERY 3 DAY
     Route: 048
  3. PANTOPRAZOLE [Suspect]
     Active Substance: PANTOPRAZOLE
     Indication: PRODUCT USED FOR UNKNOWN INDICATION
     Dosage: DAILY DOSE: 40?MG MILLIGRAM(S)?EVERY DAY
     Route: 048
  4. VITAMIN B6 [Concomitant]
     Active Substance: PYRIDOXINE HYDROCHLORIDE
     Indication: PRODUCT USED FOR UNKNOWN INDICATION
     Dosage: DAILY DOSE: 1 DF DOSAGE FORM EVERY 3 DAY
     Route: 048
  5. RAMIPRIL. [Concomitant]
     Active Substance: RAMIPRIL
     Indication: PRODUCT USED FOR UNKNOWN INDICATION
     Dosage: DAILY DOSE: 5 MG?MILLIGRAM(S) EVERY?DAY
     Route: 048
  6. PREGABALIN. [Suspect]
     Active Substance: PREGABALIN
     Indication: PRODUCT USED FOR UNKNOWN INDICATION
     Dosage: DAILY DOSE: 100 MG MILLIGRAM(S) EVERY DAY
     Route: 048
  7. VARDENAFIL HYDROCHLORIDE [Concomitant]
     Active Substance: VARDENAFIL HYDROCHLORIDE TRIHYDRATE
     Indication: PRODUCT USED FOR UNKNOWN INDICATION
     Dosage: BEDARF
     Route: 048
  8. METAMIZOL [Concomitant]
     Active Substance: METAMIZOLE SODIUM
     Indication: PRODUCT USED FOR UNKNOWN INDICATION
     Dosage: 3 G GRAM(S) EVERY DAY
     Route: 048
  9. METAMIZOL [Suspect]
     Active Substance: METAMIZOLE SODIUM
     Indication: POST HERPETIC NEURALGIA
     Dosage: DAILY DOSE: 1500 ORAL MG MILLIGRAM(S) EVERY 2 DAY
     Route: 048
     Dates: start: 20170717, end: 20170811
  10. ACICLOVIR [Suspect]
     Active Substance: ACYCLOVIR
     Indication: HERPES ZOSTER
     Dosage: DAILY DOSE: 4000 MG MILLIGRAM(S) EVERY DAY
     Route: 048
     Dates: start: 20170704, end: 20170718
  11. ZOPICLONE [Suspect]
     Active Substance: ZOPICLONE
     Indication: PRODUCT USED FOR UNKNOWN INDICATION
     Dosage: DAILY DOSE: 3 75 MG MILLIGRAM(S) EVERY DAY
     Route: 048
  12. SALBUTAMOL [Concomitant]
     Active Substance: ALBUTEROL
     Indication: PRODUCT USED FOR UNKNOWN INDICATION
     Dosage: DAILY DOSE: 0 36 MG MILLIGRAM(S) EVERY 2 DAY
     Route: 055
  13. ASPIRIN. [Concomitant]
     Active Substance: ASPIRIN
     Indication: PRODUCT USED FOR UNKNOWN INDICATION
     Dosage: DAILY DOSE: 100 MG MILLIGRAM(S) EVERY DAY
     Route: 048
  14. COLECALCIFEROL [Concomitant]
     Active Substance: CHOLECALCIFEROL
     Indication: PRODUCT USED FOR UNKNOWN INDICATION
     Dosage: DAILY DOSE: 1 IU?INTERNATIONAL UNIT(S)?EVERY WEEK
     Route: 048
  15. VITAMIN B12 [Concomitant]
     Active Substance: CYANOCOBALAMIN
     Indication: PRODUCT USED FOR UNKNOWN INDICATION
     Dosage: DAILY DOSE: 1 DF DOSAGE FORM EVERY 3 DAY
     Route: 048

REACTIONS (7)
  - Hepatic enzyme increased [Recovering/Resolving]
  - Food interaction [Recovering/Resolving]
  - Accessory spleen [Recovering/Resolving]
  - Transaminases increased [Recovering/Resolving]
  - Cholestasis [Recovering/Resolving]
  - Cholelithiasis [Recovering/Resolving]
  - Hepatic cyst [Recovering/Resolving]

NARRATIVE: CASE EVENT DATE: 201708
